FAERS Safety Report 5267569-9 (Version None)
Quarter: 2007Q1

REPORT INFORMATION
  Report Type: 
  Country: None (occurrence: None)
  Receive Date: 20070316
  Receipt Date: 20070308
  Transmission Date: 20070707
  Serious: Yes (Hospitalization)
  Sender: FDA-Public Use
  Company Number: SE-ABBOTT-07P-150-0360615-00

PATIENT
  Age: 58 Year
  Sex: Male

DRUGS (11)
  1. HUMIRA [Suspect]
     Indication: RHEUMATOID ARTHRITIS
     Route: 058
     Dates: start: 20040101, end: 20060901
  2. BRUFEN RETARD [Suspect]
     Indication: DRUG USE FOR UNKNOWN INDICATION
     Route: 048
     Dates: start: 20040101, end: 20060901
  3. ACETAMINOPHEN [Suspect]
     Indication: DRUG USE FOR UNKNOWN INDICATION
     Route: 048
     Dates: start: 20040101, end: 20060901
  4. FLUANXOL [Suspect]
     Indication: DEPRESSION
     Dates: start: 20060101, end: 20060901
  5. FLUANXOL [Suspect]
     Indication: MENTAL DISORDER
  6. UNKNOWN MEDICATION [Suspect]
     Indication: DEPRESSION
     Route: 048
     Dates: end: 20060901
  7. UNKNOWN MEDICATION [Suspect]
     Indication: RHEUMATOID ARTHRITIS
  8. UNKNOWN MEDICATION [Suspect]
     Route: 048
     Dates: end: 20060901
  9. UNKNOWN MEDICATION [Concomitant]
     Indication: DRUG USE FOR UNKNOWN INDICATION
  10. METFORMIN HCL [Concomitant]
     Indication: DRUG USE FOR UNKNOWN INDICATION
  11. METHOTREXATE [Concomitant]
     Indication: DRUG USE FOR UNKNOWN INDICATION
     Dates: start: 20040101

REACTIONS (2)
  - LIVER FUNCTION TEST ABNORMAL [None]
  - MENTAL DISORDER [None]
